FAERS Safety Report 10682154 (Version 3)
Quarter: 2015Q1

REPORT INFORMATION
  Report Type: Spontaneous
  Country: JP (occurrence: None)
  Receive Date: 20141224
  Receipt Date: 20150209
  Transmission Date: 20150720
  Serious: Yes (Hospitalization)
  Sender: FDA-Public Use
  Company Number: JP-20140353

PATIENT
  Age: 88 Year
  Sex: Female

DRUGS (3)
  1. FARMORUBICIN (EPIRUBICIN HYDORCHLORIDE) [Concomitant]
  2. GELPART (GELATIN), UNKNOWN [Concomitant]
     Active Substance: GELATIN
  3. LIPIODOL ULTRA FLUID [Suspect]
     Active Substance: ETHIODIZED OIL
     Indication: THERAPEUTIC EMBOLISATION
     Route: 013
     Dates: start: 20140714, end: 20140714

REACTIONS (1)
  - Cholecystitis infective [None]

NARRATIVE: CASE EVENT DATE: 20140717
